FAERS Safety Report 24971881 (Version 2)
Quarter: 2025Q3

REPORT INFORMATION
  Report Type: Report from Study
  Country: US (occurrence: None)
  Receive Date: 20250214
  Receipt Date: 20250810
  Transmission Date: 20251020
  Serious: Yes (Life-Threatening, Hospitalization, Other)
  Sender: ALEXION PHARMACEUTICALS
  Company Number: US-AstraZeneca-2013SE40306

PATIENT
  Age: 35 Year
  Sex: Male
  Weight: 97.522 kg

DRUGS (6)
  1. NEXIUM [Suspect]
     Active Substance: ESOMEPRAZOLE MAGNESIUM
     Indication: Gastrooesophageal reflux disease
     Dosage: 30 MILLIGRAM, QD
     Dates: start: 2000
  2. SEROQUEL [Suspect]
     Active Substance: QUETIAPINE FUMARATE
     Indication: Anxiety
     Dosage: 600 MILLIGRAM, QD
     Dates: start: 2002
  3. SEROQUEL [Suspect]
     Active Substance: QUETIAPINE FUMARATE
     Indication: Depression
  4. EFFEXOR [Suspect]
     Active Substance: VENLAFAXINE HYDROCHLORIDE
     Dosage: 225 MILLIGRAM, QD
     Dates: start: 1999
  5. UNSPECIFIED INGREDIENT [Suspect]
     Active Substance: UNSPECIFIED INGREDIENT
     Route: 065
  6. CLONAZEPAM [Concomitant]
     Active Substance: CLONAZEPAM
     Dosage: 1 MILLIGRAM, QID
     Dates: start: 2011

REACTIONS (22)
  - Overdose [Unknown]
  - Suicide attempt [Unknown]
  - Coma [Unknown]
  - Binge drinking [Unknown]
  - Suicidal ideation [Recovered/Resolved]
  - Tympanic membrane perforation [Unknown]
  - Drug withdrawal syndrome [Unknown]
  - Hyperhidrosis [Unknown]
  - Anxiety [Unknown]
  - Insomnia [Unknown]
  - Feeling of body temperature change [Unknown]
  - Depression [Unknown]
  - Stress [Unknown]
  - Road traffic accident [Unknown]
  - Limb injury [Unknown]
  - Localised infection [Unknown]
  - Pain [Unknown]
  - Gait disturbance [Unknown]
  - Bronchitis [Unknown]
  - Mental disorder [Unknown]
  - Off label use [Unknown]
  - Intentional product misuse [Unknown]

NARRATIVE: CASE EVENT DATE: 20050101
